FAERS Safety Report 23765408 (Version 4)
Quarter: 2024Q3

REPORT INFORMATION
  Report Type: Spontaneous
  Country: US (occurrence: US)
  Receive Date: 20240420
  Receipt Date: 20240810
  Transmission Date: 20241017
  Serious: No
  Sender: SANOFI AVENTIS
  Company Number: US-SA-SAC20240418000140

PATIENT
  Age: 60 Year
  Sex: Female

DRUGS (2)
  1. DUPIXENT [Suspect]
     Active Substance: DUPILUMAB
     Indication: Dermatitis atopic
     Dosage: 600 MG, 1X
     Route: 058
     Dates: start: 202404, end: 202404
  2. DUPIXENT [Suspect]
     Active Substance: DUPILUMAB
     Dosage: 300 MG, QOW
     Route: 058
     Dates: start: 202404

REACTIONS (9)
  - Injection site injury [Unknown]
  - Skin discolouration [Unknown]
  - Pruritus [Unknown]
  - Skin exfoliation [Unknown]
  - Injection site pruritus [Recovered/Resolved]
  - Injection site swelling [Unknown]
  - Injection site rash [Unknown]
  - Injection site bruising [Unknown]
  - Injection site pain [Unknown]

NARRATIVE: CASE EVENT DATE: 20240101
